FAERS Safety Report 21369872 (Version 1)
Quarter: 2022Q3

REPORT INFORMATION
  Report Type: Spontaneous
  Country: CA (occurrence: CA)
  Receive Date: 20220923
  Receipt Date: 20220923
  Transmission Date: 20221027
  Serious: Yes (Life-Threatening)
  Sender: FDA-Public Use
  Company Number: CA-PFIZER INC-202201176957

PATIENT
  Age: 7 Year
  Sex: Male
  Weight: 21 kg

DRUGS (39)
  1. METHOTREXATE SODIUM [Suspect]
     Active Substance: METHOTREXATE SODIUM
     Indication: Prophylaxis against graft versus host disease
     Dosage: 4.3 MG, CYCLIC
     Route: 041
  2. BUSULFAN [Suspect]
     Active Substance: BUSULFAN
     Indication: Bone marrow conditioning regimen
     Dosage: 80 MG, CYCLIC
     Route: 041
  3. BUSULFAN [Suspect]
     Active Substance: BUSULFAN
     Dosage: 120 MG, CYCLIC
     Route: 041
  4. BUSULFAN [Suspect]
     Active Substance: BUSULFAN
     Dosage: 140 MG, CYCLIC
     Route: 041
  5. BUSULFAN [Suspect]
     Active Substance: BUSULFAN
     Dosage: 150 MG, CYCLIC
     Route: 041
  6. CYCLOPHOSPHAMIDE [Suspect]
     Active Substance: CYCLOPHOSPHAMIDE
     Indication: Bone marrow conditioning regimen
     Dosage: 1020 MG
     Route: 041
  7. VYXEOS [Suspect]
     Active Substance: CYTARABINE\DAUNORUBICIN
     Dosage: UNK, CYCLIC
     Route: 041
  8. ACETAMINOPHEN [Concomitant]
     Active Substance: ACETAMINOPHEN
  9. AMLODIPINE [Concomitant]
     Active Substance: AMLODIPINE BESYLATE
     Route: 065
  10. THYMOCYTE IMMUNE GLOBULIN NOS [Concomitant]
     Active Substance: THYMOCYTE IMMUNE GLOBULIN NOS
  11. CALCIUM CARBONATE\CHOLECALCIFEROL [Concomitant]
     Active Substance: CALCIUM CARBONATE\CHOLECALCIFEROL
     Route: 065
  12. CETIRIZINE [Concomitant]
     Active Substance: CETIRIZINE HYDROCHLORIDE
     Route: 065
  13. CYCLOSPORINE [Concomitant]
     Active Substance: CYCLOSPORINE
     Route: 065
  14. DEXAMETHASONE [Concomitant]
     Active Substance: DEXAMETHASONE
     Route: 065
  15. DIMENHYDRINATE [Concomitant]
     Active Substance: DIMENHYDRINATE
  16. FAMOTIDINE [Concomitant]
     Active Substance: FAMOTIDINE
  17. FLUCONAZOLE [Concomitant]
     Active Substance: FLUCONAZOLE
  18. FUROSEMIDE [Concomitant]
     Active Substance: FUROSEMIDE
     Route: 065
  19. GRANULOCYTE COLONY-STIMULATING FACTOR NOS [Concomitant]
     Active Substance: GRANULOCYTE COLONY-STIMULATING FACTOR NOS
  20. HEPARIN SODIUM [Concomitant]
     Active Substance: HEPARIN SODIUM
  21. HYDROCORTISONE [Concomitant]
     Active Substance: HYDROCORTISONE
  22. LEVETIRACETAM [Concomitant]
     Active Substance: LEVETIRACETAM
     Route: 065
  23. LEVOFLOXACIN [Concomitant]
     Active Substance: LEVOFLOXACIN
  24. LORAZEPAM [Concomitant]
     Active Substance: LORAZEPAM
     Route: 065
  25. MAGNESIUM SULFATE [Concomitant]
     Active Substance: MAGNESIUM SULFATE
  26. MESNA [Concomitant]
     Active Substance: MESNA
  27. METHYLPREDNISOLONE [Concomitant]
     Active Substance: METHYLPREDNISOLONE
  28. METOCLOPRAMIDE [Concomitant]
     Active Substance: METOCLOPRAMIDE
  29. MYCAMINE [Concomitant]
     Active Substance: MICAFUNGIN SODIUM
  30. NIFEDIPINE [Concomitant]
     Active Substance: NIFEDIPINE
  31. OLANZAPINE [Concomitant]
     Active Substance: OLANZAPINE
  32. ONDANSETRON [Concomitant]
     Active Substance: ONDANSETRON
  33. PIPERACILLIN AND TAZOBACTAM [Concomitant]
     Active Substance: PIPERACILLIN SODIUM\TAZOBACTAM SODIUM
  34. POLYETHYLENE GLYCOLS [Concomitant]
     Active Substance: POLYETHYLENE GLYCOLS
  35. SULFAMETHOXAZOLE AND TRIMETHOPRIM [Concomitant]
     Active Substance: SULFAMETHOXAZOLE\TRIMETHOPRIM
     Route: 065
  36. TRANEXAMIC ACID [Concomitant]
     Active Substance: TRANEXAMIC ACID
  37. URSODIOL [Concomitant]
     Active Substance: URSODIOL
  38. VALACYCLOVIR [Concomitant]
     Active Substance: VALACYCLOVIR HYDROCHLORIDE
  39. VANCOMYCIN HYDROCHLORIDE [Concomitant]
     Active Substance: VANCOMYCIN HYDROCHLORIDE

REACTIONS (3)
  - Aplastic anaemia [Recovered/Resolved]
  - Mucosal inflammation [Recovered/Resolved]
  - Off label use [Unknown]
